FAERS Safety Report 19156274 (Version 1)
Quarter: 2021Q2

REPORT INFORMATION
  Report Type: Spontaneous
  Country: US (occurrence: US)
  Receive Date: 20210419
  Receipt Date: 20210419
  Transmission Date: 20210717
  Serious: Yes (Hospitalization)
  Sender: FDA-Public Use
  Company Number: US-LUNDBECK-DKLU3031647

PATIENT
  Age: 40 Year
  Sex: Female

DRUGS (1)
  1. NORTHERA [Suspect]
     Active Substance: DROXIDOPA
     Indication: ADRENOCORTICAL INSUFFICIENCY ACUTE
     Route: 048
     Dates: start: 20201001, end: 20210316

REACTIONS (3)
  - Tonsillectomy [Recovered/Resolved]
  - Off label use [Unknown]
  - Postoperative wound infection [Recovered/Resolved]

NARRATIVE: CASE EVENT DATE: 20201001
